FAERS Safety Report 20060688 (Version 1)
Quarter: 2021Q4

REPORT INFORMATION
  Report Type: Spontaneous
  Country: US (occurrence: US)
  Receive Date: 20211112
  Receipt Date: 20211112
  Transmission Date: 20220303
  Serious: Yes (Disabling, Other)
  Sender: FDA-Public Use
  Company Number: US-SA-SAC20211110001108

PATIENT
  Sex: Female

DRUGS (2)
  1. FABRAZYME [Suspect]
     Active Substance: AGALSIDASE BETA
     Indication: Fabry^s disease
     Dosage: 5 MG, QOW
     Route: 042
     Dates: start: 20140708
  2. FABRAZYME [Suspect]
     Active Substance: AGALSIDASE BETA
     Indication: Lipidosis

REACTIONS (13)
  - Pericardial fibrosis [Unknown]
  - Gait disturbance [Unknown]
  - Housebound [Unknown]
  - Intervertebral disc degeneration [Unknown]
  - Pain [Unknown]
  - Decreased appetite [Unknown]
  - Joint swelling [Unknown]
  - Constipation [Unknown]
  - Diarrhoea [Unknown]
  - Abdominal discomfort [Unknown]
  - Dizziness [Unknown]
  - Wheezing [Unknown]
  - Cough [Unknown]
